FAERS Safety Report 13678220 (Version 3)
Quarter: 2017Q4

REPORT INFORMATION
  Report Type: Report from Study
  Country: US (occurrence: US)
  Receive Date: 20170622
  Receipt Date: 20171207
  Transmission Date: 20180320
  Serious: Yes (Hospitalization, Other)
  Sender: FDA-Public Use
  Company Number: PHEH2017US018440

PATIENT
  Sex: Male

DRUGS (2)
  1. MEKINIST [Suspect]
     Active Substance: TRAMETINIB DIMETHYL SULFOXIDE
     Indication: PRODUCT USED FOR UNKNOWN INDICATION
     Route: 065
  2. TAFINLAR [Suspect]
     Active Substance: DABRAFENIB MESYLATE
     Indication: PRODUCT USED FOR UNKNOWN INDICATION
     Route: 065

REACTIONS (12)
  - Blood urine present [Unknown]
  - White blood cell count decreased [Unknown]
  - Bladder cancer [Unknown]
  - Haemorrhage [Unknown]
  - Rash [Unknown]
  - Back pain [Unknown]
  - Road traffic accident [Unknown]
  - Hepatic cancer [Unknown]
  - Skin cancer [Unknown]
  - Spinal fracture [Unknown]
  - Metastatic malignant melanoma [Unknown]
  - Urinary tract infection [Unknown]
